FAERS Safety Report 22960923 (Version 2)
Quarter: 2023Q4

REPORT INFORMATION
  Report Type: Report from Study
  Country: MX (occurrence: MX)
  Receive Date: 20230920
  Receipt Date: 20231031
  Transmission Date: 20240110
  Serious: Yes (Other)
  Sender: FDA-Public Use
  Company Number: MX-002147023-NVSC2023MX112024

PATIENT
  Age: 47 Year
  Sex: Female
  Weight: 54 kg

DRUGS (3)
  1. GILENYA [Suspect]
     Active Substance: FINGOLIMOD HYDROCHLORIDE
     Indication: Multiple sclerosis
     Dosage: 1 DOSAGE FORM, QD (BY MOUTH)
     Route: 048
     Dates: start: 20220913
  2. SERTRALINE [Concomitant]
     Active Substance: SERTRALINE HYDROCHLORIDE
     Indication: Depression
     Dosage: 0.5 DOSAGE FORM, QD (?) (STARTED SEVERAL YEARS AGO, DOES NOT KNOW THE EXACT DATE)
     Route: 048
  3. CLONAZEPAM [Concomitant]
     Active Substance: CLONAZEPAM
     Indication: Insomnia
     Dosage: 0.5 DOSAGE FORM, QD
     Route: 048
     Dates: start: 2008

REACTIONS (12)
  - Cataract [Not Recovered/Not Resolved]
  - Seizure [Recovered/Resolved]
  - Dry eye [Unknown]
  - Fall [Recovered/Resolved]
  - Premature menopause [Recovering/Resolving]
  - Atrophic vulvovaginitis [Not Recovered/Not Resolved]
  - Breast mass [Not Recovered/Not Resolved]
  - Breast pain [Not Recovered/Not Resolved]
  - Urinary incontinence [Not Recovered/Not Resolved]
  - Anal incontinence [Not Recovered/Not Resolved]
  - Vaginal discharge [Recovered/Resolved]
  - White blood cell count decreased [Not Recovered/Not Resolved]

NARRATIVE: CASE EVENT DATE: 20220901
